FAERS Safety Report 4876209-X (Version None)
Quarter: 2006Q1

REPORT INFORMATION
  Report Type: 
  Country: None (occurrence: None)
  Receive Date: 20060106
  Receipt Date: 20051222
  Transmission Date: 20060701
  Serious: Yes (Other)
  Sender: FDA-Public Use
  Company Number: US200512000633

PATIENT
  Age: 47 Year
  Sex: Female

DRUGS (4)
  1. ALIMTA [Suspect]
     Indication: OVARIAN CANCER
     Dates: start: 20020225, end: 20051028
  2. VITAMIN B12 [Concomitant]
  3. FOLIC ACID [Concomitant]
  4. CORTICOSTEROID NOS (CORTICOSTEROID NOS) [Concomitant]

REACTIONS (3)
  - CONDUCTIVE DEAFNESS [None]
  - DEAFNESS NEUROSENSORY [None]
  - VESTIBULAR DISORDER [None]
